FAERS Safety Report 8499369-0 (Version None)
Quarter: 2012Q3

REPORT INFORMATION
  Report Type: 
  Country: None (occurrence: None)
  Receive Date: 20120710
  Receipt Date: 20120629
  Transmission Date: 20120928
  Serious: Yes (Hospitalization)
  Sender: FDA-Public Use
  Company Number: CN-ACCORD-013979

PATIENT
  Age: 33 Year
  Sex: Male

DRUGS (2)
  1. LAMOTRIGINE [Suspect]
     Dosage: FOR 3 YEARS
  2. CLONAZEPAM [Suspect]
     Indication: BIPOLAR DISORDER
     Dosage: FOR 3 YEARS.

REACTIONS (6)
  - ENCEPHALOPATHY [None]
  - DYSPNOEA [None]
  - SINUS TACHYCARDIA [None]
  - TOXICITY TO VARIOUS AGENTS [None]
  - CHILLS [None]
  - GRAND MAL CONVULSION [None]
